FAERS Safety Report 21729366 (Version 1)
Quarter: 2022Q4

REPORT INFORMATION
  Report Type: Report from Study
  Country: US (occurrence: US)
  Receive Date: 20221214
  Receipt Date: 20221214
  Transmission Date: 20230113
  Serious: No
  Sender: FDA-Public Use
  Company Number: US-AGIOS-2212US03203

PATIENT
  Sex: Female

DRUGS (1)
  1. MITAPIVAT [Suspect]
     Active Substance: MITAPIVAT
     Indication: Pyruvate kinase deficiency anaemia
     Dosage: 5 MILLIGRAM, BID
     Route: 048
     Dates: start: 20220520

REACTIONS (5)
  - Laboratory test abnormal [Unknown]
  - Haemoglobin abnormal [Unknown]
  - Blood iron increased [Unknown]
  - Sleep disorder [Unknown]
  - Therapy non-responder [Unknown]
